FAERS Safety Report 6883026 (Version 4)
Quarter: 2013Q1

REPORT INFORMATION
  Report Type: Report from Study
  Country: EG (occurrence: EG)
  Receive Date: 20090116
  Receipt Date: 20130121
  Transmission Date: 20140127
  Serious: Yes (Hospitalization, Disabling)
  Sender: FDA-Public Use
  Company Number: PHHO2009EG00571

PATIENT
  Age: 55 Year
  Sex: Male

DRUGS (3)
  1. ALISKIREN [Suspect]
     Indication: ESSENTIAL HYPERTENSION
     Dosage: 300 MG
     Dates: start: 20081030, end: 20090107
  2. AMLODIPINE [Suspect]
     Indication: ESSENTIAL HYPERTENSION
     Dosage: 10 MG
     Dates: start: 20081030, end: 20090107
  3. HYDROCHLOROTHIAZIDE [Suspect]
     Indication: ESSENTIAL HYPERTENSION
     Dosage: 25 MG
     Dates: start: 20081030, end: 20090107

REACTIONS (5)
  - Cerebrovascular accident [Recovering/Resolving]
  - Hemiparesis [Recovering/Resolving]
  - Urinary incontinence [Recovering/Resolving]
  - Faecal incontinence [Recovering/Resolving]
  - Drug ineffective [Recovering/Resolving]
